FAERS Safety Report 16964271 (Version 1)
Quarter: 2019Q4

REPORT INFORMATION
  Report Type: Spontaneous
  Country: US (occurrence: US)
  Receive Date: 20191026
  Receipt Date: 20191026
  Transmission Date: 20200122
  Serious: Yes (Other)
  Sender: FDA-Public Use
  Company Number: None

PATIENT
  Age: 61 Year
  Sex: Female
  Weight: 65.7 kg

DRUGS (17)
  1. CPAP MACHINE [Concomitant]
  2. ALENDRONATE [Concomitant]
     Active Substance: ALENDRONATE SODIUM
  3. CARBAMAZEPINE. [Concomitant]
     Active Substance: CARBAMAZEPINE
  4. CALCIUM WITH D [Concomitant]
     Active Substance: CALCIUM\VITAMIN D
  5. IPRATROPIUM BROMIDE. [Concomitant]
     Active Substance: IPRATROPIUM BROMIDE
  6. BENADRYL [Concomitant]
     Active Substance: DIPHENHYDRAMINE HYDROCHLORIDE
  7. ERYTHROMYCIN. [Concomitant]
     Active Substance: ERYTHROMYCIN
  8. MONTELUKAST [Suspect]
     Active Substance: MONTELUKAST SODIUM
     Indication: SINUS DISORDER
     Dosage: ?          QUANTITY:1 TABLET(S);?
     Route: 048
     Dates: start: 20190904, end: 20190930
  9. ANTI-DIARRHEA TABLETS [Concomitant]
  10. SIMPLY SALINE [Concomitant]
  11. LACTULOSE LIQUID [Concomitant]
  12. ALPRAZOLAM. [Concomitant]
     Active Substance: ALPRAZOLAM
  13. FUROSEMIDE. [Concomitant]
     Active Substance: FUROSEMIDE
  14. FOLIC ACID. [Concomitant]
     Active Substance: FOLIC ACID
  15. FLUTICASONE. [Concomitant]
     Active Substance: FLUTICASONE
  16. HYDRO/APAP [Concomitant]
     Active Substance: ACETAMINOPHEN\HYDROCODONE
  17. MULTIVITAMIN [Concomitant]
     Active Substance: VITAMINS

REACTIONS (1)
  - Urticaria [None]

NARRATIVE: CASE EVENT DATE: 20190930
